FAERS Safety Report 20603180 (Version 1)
Quarter: 2022Q1

REPORT INFORMATION
  Report Type: Spontaneous
  Country: US (occurrence: None)
  Receive Date: 20220316
  Receipt Date: 20220316
  Transmission Date: 20220423
  Serious: Yes (Other)
  Sender: FDA-Public Use
  Company Number: None

PATIENT
  Age: 36 Year
  Sex: Female
  Weight: 90 kg

DRUGS (7)
  1. SUBOXONE [Suspect]
     Active Substance: BUPRENORPHINE HYDROCHLORIDE\NALOXONE HYDROCHLORIDE
     Indication: Substance abuse
     Dosage: OTHER QUANTITY : 84 FILMS;?FREQUENCY : 3 TIMES A DAY;?
     Route: 060
  2. CLONIDINE [Concomitant]
     Active Substance: CLONIDINE
  3. GABAPENTIN [Concomitant]
     Active Substance: GABAPENTIN
  4. VYVANSE [Concomitant]
     Active Substance: LISDEXAMFETAMINE DIMESYLATE
  5. LEXAPRO [Concomitant]
     Active Substance: ESCITALOPRAM OXALATE
  6. IBUPROFEN [Concomitant]
     Active Substance: IBUPROFEN
  7. BENADRYL [Concomitant]
     Active Substance: DIPHENHYDRAMINE HYDROCHLORIDE

REACTIONS (4)
  - Tooth loss [None]
  - Dental caries [None]
  - Tooth infection [None]
  - Tooth fracture [None]

NARRATIVE: CASE EVENT DATE: 20220228
